FAERS Safety Report 22370031 (Version 2)
Quarter: 2023Q2

REPORT INFORMATION
  Report Type: Spontaneous
  Country: US (occurrence: US)
  Receive Date: 20230526
  Receipt Date: 20230531
  Transmission Date: 20230721
  Serious: Yes (Hospitalization, Other)
  Sender: FDA-Public Use
  Company Number: US-SA-2023SA158211

PATIENT
  Age: 46 Year
  Sex: Female

DRUGS (4)
  1. OXALIPLATIN [Suspect]
     Active Substance: OXALIPLATIN
     Indication: Adenocarcinoma of colon
     Dosage: UNK
  2. OXALIPLATIN [Suspect]
     Active Substance: OXALIPLATIN
     Dosage: UNK
  3. FLUOROURACIL [Concomitant]
     Active Substance: FLUOROURACIL
     Indication: Adenocarcinoma of colon
  4. LEUCOVORIN CALCIUM [Concomitant]
     Active Substance: LEUCOVORIN CALCIUM
     Indication: Adenocarcinoma of colon

REACTIONS (11)
  - Gastric ulcer [Unknown]
  - Syncope [Unknown]
  - Varices oesophageal [Unknown]
  - Haematemesis [Unknown]
  - Melaena [Unknown]
  - Faeces discoloured [Unknown]
  - Non-cirrhotic portal hypertension [Unknown]
  - Splenomegaly [Unknown]
  - Nodular regenerative hyperplasia [Unknown]
  - Tachycardia [Unknown]
  - Hypotension [Unknown]
